FAERS Safety Report 5233586-8 (Version None)
Quarter: 2007Q1

REPORT INFORMATION
  Report Type: 
  Country: None (occurrence: None)
  Receive Date: 20061208
  Receipt Date: 20060302
  Transmission Date: 20070707
  Serious: Yes (Other)
  Sender: FDA-Public Use
  Company Number: 2006UW03535

PATIENT
  Age: 63 Year
  Sex: Female

DRUGS (2)
  1. CRESTOR [Suspect]
     Dosage: 10 MG HS PO
     Route: 048
  2. TOPROL-XL [Concomitant]

REACTIONS (2)
  - DRY MOUTH [None]
  - TONGUE DISORDER [None]
